FAERS Safety Report 25147316 (Version 1)
Quarter: 2025Q2

REPORT INFORMATION
  Report Type: Report from Study
  Country: DE (occurrence: DE)
  Receive Date: 20250401
  Receipt Date: 20250401
  Transmission Date: 20250717
  Serious: Yes (Other)
  Sender: ALEXION PHARMACEUTICALS
  Company Number: DE-002147023-NVSC2022DE227957

PATIENT

DRUGS (7)
  1. FULVESTRANT [Suspect]
     Active Substance: FULVESTRANT
     Indication: Breast cancer metastatic
     Dosage: 500 MILLIGRAM, Q2W
  2. FULVESTRANT [Suspect]
     Active Substance: FULVESTRANT
  3. KISQALI [Suspect]
     Active Substance: RIBOCICLIB
     Indication: Breast cancer metastatic
     Dosage: 400 MG, QD (SCHEME 21 DAYS INTAKE, 7 DAYS PAUSE)
  4. KISQALI [Suspect]
     Active Substance: RIBOCICLIB
     Dosage: 400 MG, QD (SCHEME 21 DAYS INTAKE, 7 DAYS PAUSE)
  5. KISQALI [Suspect]
     Active Substance: RIBOCICLIB
     Dosage: 200 MG, QD (SCHEME 21 DAYS INTAKE, 7 DAYS PAUSE)
  6. KISQALI [Suspect]
     Active Substance: RIBOCICLIB
     Dosage: 400 MG, QD (SCHEME 21 DAYS INTAKE, 7 DAYS PAUSE)
     Route: 065
  7. KISQALI [Suspect]
     Active Substance: RIBOCICLIB
     Dosage: 400 MG, QD (SCHEME 21 DAYS INTAKE, 7 DAYS PAUSE)
     Route: 065

REACTIONS (2)
  - Neutropenia [Recovered/Resolved]
  - Diverticulitis [Recovered/Resolved]
